FAERS Safety Report 25510057 (Version 2)
Quarter: 2025Q3

REPORT INFORMATION
  Report Type: Spontaneous
  Country: EU (occurrence: EU)
  Receive Date: 20250703
  Receipt Date: 20250905
  Transmission Date: 20251020
  Serious: Yes (Other)
  Sender: TEVA
  Company Number: EU-TEVA-VS-3347711

PATIENT
  Age: 25 Year
  Sex: Female

DRUGS (7)
  1. OLANZAPINE [Suspect]
     Active Substance: OLANZAPINE
     Indication: Underweight
     Route: 065
     Dates: start: 20150720, end: 201602
  2. OLANZAPINE [Suspect]
     Active Substance: OLANZAPINE
     Indication: Underweight
     Route: 065
     Dates: start: 201711
  3. OLANZAPINE [Suspect]
     Active Substance: OLANZAPINE
     Indication: Underweight
     Route: 065
     Dates: start: 202004, end: 20230901
  4. CITALOPRAM [Concomitant]
     Active Substance: CITALOPRAM
     Indication: Mixed anxiety and depressive disorder
     Dates: start: 201503, end: 201609
  5. FLUOXETINE [Concomitant]
     Active Substance: FLUOXETINE HYDROCHLORIDE
     Indication: Depression
     Dates: start: 201509, end: 201602
  6. WELLBUTRIN [Concomitant]
     Active Substance: BUPROPION HYDROCHLORIDE
     Indication: Depression
     Dates: start: 201509, end: 201602
  7. CANNABIS SATIVA SUBSP. INDICA TOP [Suspect]
     Active Substance: CANNABIS SATIVA SUBSP. INDICA TOP
     Indication: Depression
     Route: 065

REACTIONS (8)
  - Suicide attempt [Unknown]
  - Depression [Unknown]
  - Anxiety [Unknown]
  - Suicidal ideation [Unknown]
  - Panic attack [Unknown]
  - Social anxiety disorder [Unknown]
  - Impaired work ability [Unknown]
  - Adverse event [Unknown]

NARRATIVE: CASE EVENT DATE: 20180606
